FAERS Safety Report 9122167 (Version 1)
Quarter: 2013Q1

REPORT INFORMATION
  Report Type: Spontaneous
  Country: US (occurrence: US)
  Receive Date: 20130227
  Receipt Date: 20130227
  Transmission Date: 20140127
  Serious: No
  Sender: FDA-Public Use
  Company Number: US-VERTEX PHARMACEUTICALS INC.-2013-002702

PATIENT
  Age: 52 Year
  Sex: Female
  Weight: 117 kg

DRUGS (4)
  1. INCIVEK [Suspect]
     Indication: HEPATITIS C
     Dosage: 750 MG, TID
     Route: 048
     Dates: start: 20130221
  2. PEGASYS [Suspect]
     Indication: HEPATITIS C
     Dosage: 180 ?G, QW
     Route: 058
     Dates: start: 20130221
  3. RIBAVIRIN [Suspect]
     Indication: HEPATITIS C
     Dosage: 600 MG, BID
     Dates: start: 20130221
  4. METOPROLOL [Concomitant]
     Indication: HEART RATE IRREGULAR
     Dosage: 75 MG, BID

REACTIONS (1)
  - Rash generalised [Not Recovered/Not Resolved]
